FAERS Safety Report 4280599-9 (Version None)
Quarter: 2004Q1

REPORT INFORMATION
  Report Type: 
  Country: None (occurrence: None)
  Receive Date: 20040127
  Receipt Date: 20040113
  Transmission Date: 20041129
  Serious: Yes (Hospitalization)
  Sender: FDA-Public Use
  Company Number: US011108

PATIENT
  Age: 48 Year
  Sex: Male
  Weight: 99.7913 kg

DRUGS (5)
  1. PROVIGIL [Suspect]
     Indication: CHRONIC FATIGUE SYNDROME
     Dosage: 400 MG BID ORAL
     Route: 048
     Dates: start: 20010101, end: 20030618
  2. PROVIGIL [Suspect]
     Indication: NARCOLEPSY
     Dosage: 400 MG BID ORAL
     Route: 048
     Dates: start: 20010101, end: 20030618
  3. PERCOCET [Concomitant]
  4. PROZAC [Concomitant]
  5. ALLEGRA [Concomitant]

REACTIONS (5)
  - ACIDOSIS [None]
  - HEPATIC STEATOSIS [None]
  - NAUSEA [None]
  - PAROSMIA [None]
  - VOMITING [None]
